FAERS Safety Report 9528238 (Version 1)
Quarter: 2013Q1

REPORT INFORMATION
  Report Type: Spontaneous
  Country: US (occurrence: None)
  Receive Date: 20130322
  Receipt Date: 20130322
  Transmission Date: 20140127
  Serious: Yes (Hospitalization)
  Sender: FDA-Public Use
  Company Number: PHEH2012US004428

PATIENT
  Age: 56 Year
  Sex: Male

DRUGS (2)
  1. NEORAL (CICLOSPORIN) UNKNOWN [Suspect]
     Indication: IMMUNOSUPPRESSION
     Dosage: 100 MG, BID, ORAL
     Route: 048
  2. ANTIBIOTICS (NO INCREDIENTS /SUBSTANCES) [Concomitant]

REACTIONS (5)
  - Pneumonia [None]
  - Iron binding capacity total decreased [None]
  - Blood iron decreased [None]
  - Haematocrit decreased [None]
  - Haemoglobin decreased [None]
